FAERS Safety Report 24323316 (Version 4)
Quarter: 2025Q3

REPORT INFORMATION
  Report Type: Report from Study
  Country: US (occurrence: US)
  Receive Date: 20240916
  Receipt Date: 20250704
  Transmission Date: 20251021
  Serious: Yes (Life-Threatening, Other)
  Sender: UCB
  Company Number: US-UCBSA-2024042690

PATIENT
  Sex: Female
  Weight: 81.6 kg

DRUGS (5)
  1. FINTEPLA [Suspect]
     Active Substance: FENFLURAMINE
     Indication: Lennox-Gastaut syndrome
     Dosage: 5.9 MILLILITER, 2X/DAY (BID)
     Route: 048
     Dates: start: 20231227
  2. APTIOM [Concomitant]
     Active Substance: ESLICARBAZEPINE ACETATE
     Indication: Seizure
     Route: 048
  3. CENOBAMATE [Concomitant]
     Active Substance: CENOBAMATE
     Indication: Seizure
     Route: 048
  4. LAMICTAL [Concomitant]
     Active Substance: LAMOTRIGINE
     Indication: Seizure
     Route: 048
  5. FYCOMPA [Concomitant]
     Active Substance: PERAMPANEL
     Indication: Seizure
     Route: 048

REACTIONS (9)
  - Seizure [Not Recovered/Not Resolved]
  - Epilepsy [Unknown]
  - Lennox-Gastaut syndrome [Unknown]
  - Intellectual disability [Unknown]
  - Pachygyria [Unknown]
  - Generalised tonic-clonic seizure [Unknown]
  - Postictal state [Unknown]
  - Dysphagia [Not Recovered/Not Resolved]
  - Incorrect dose administered [Unknown]
